FAERS Safety Report 7519469-9 (Version None)
Quarter: 2011Q2

REPORT INFORMATION
  Report Type: 
  Country: None (occurrence: None)
  Receive Date: 20110524
  Receipt Date: 20110509
  Transmission Date: 20111010
  Serious: Yes (Death)
  Sender: FDA-Public Use
  Company Number: LTI2011A00114

PATIENT
  Age: 88 Year
  Sex: Male

DRUGS (9)
  1. LODALES 40 (SIMVASTATIN) [Concomitant]
  2. DAFLAGAN (PARACETAMOL) [Concomitant]
  3. ERYTHROPOIETIN (ERYTHROPOIETIN) [Concomitant]
  4. KARDEGIC 75 (ACETYLSALICYLATE LYSINE) [Concomitant]
  5. GUTRON (MIDODRINE HYDROCHLORIDE) [Concomitant]
  6. LASILIX 500 (FUROSEMIDE) [Concomitant]
  7. NOVONORM (REPAGLINIDE) [Concomitant]
  8. VENOFER [Concomitant]
  9. ACTOS [Suspect]
     Indication: TYPE 2 DIABETES MELLITUS
     Dosage: 30 MG (30 MG, 1 IN 1 D), ORAL
     Route: 048
     Dates: start: 20040401, end: 20100801

REACTIONS (2)
  - BLADDER CANCER [None]
  - METASTASES TO CENTRAL NERVOUS SYSTEM [None]
